FAERS Safety Report 8050193-2 (Version None)
Quarter: 2012Q1

REPORT INFORMATION
  Report Type: 
  Country: None (occurrence: None)
  Receive Date: 20120117
  Receipt Date: 20120109
  Transmission Date: 20120608
  Serious: Yes (Hospitalization)
  Sender: FDA-Public Use
  Company Number: US-BAYER-2011-036000

PATIENT
  Age: 35 Year
  Sex: Female
  Weight: 57.143 kg

DRUGS (6)
  1. YAZ [Suspect]
     Dosage: UNK
     Dates: start: 20080101, end: 20090101
  2. CIPROFLOXACIN [Concomitant]
     Indication: KIDNEY INFECTION
  3. OMEPRA 306 [Concomitant]
     Indication: ACIDOSIS
  4. NAPROXEN (ALEVE) [Concomitant]
  5. EFFEXOR [Concomitant]
     Indication: DEPRESSION
  6. VALACICLOVIR [Concomitant]
     Indication: HERPES SIMPLEX

REACTIONS (10)
  - ANXIETY [None]
  - ABDOMINAL PAIN [None]
  - EMOTIONAL DISTRESS [None]
  - ANHEDONIA [None]
  - CHOLECYSTITIS CHRONIC [None]
  - DYSPEPSIA [None]
  - GENERAL PHYSICAL HEALTH DETERIORATION [None]
  - PAIN [None]
  - GALLBLADDER DISORDER [None]
  - INJURY [None]
